FAERS Safety Report 18185731 (Version 2)
Quarter: 2022Q4

REPORT INFORMATION
  Report Type: Spontaneous
  Country: US (occurrence: US)
  Receive Date: 20200824
  Receipt Date: 20221014
  Transmission Date: 20230113
  Serious: No
  Sender: FDA-Public Use
  Company Number: US-CELLTRION INC.-2020US023187

PATIENT

DRUGS (3)
  1. INFLECTRA [Suspect]
     Active Substance: INFLIXIMAB-DYYB
     Indication: Product used for unknown indication
     Dosage: THREE LOADING DOSES
     Route: 065
  2. INFLECTRA [Suspect]
     Active Substance: INFLIXIMAB-DYYB
     Dosage: TWO-MONTH INTERVAL DOSE
     Route: 065
  3. INFLECTRA [Suspect]
     Active Substance: INFLIXIMAB-DYYB
     Dosage: AROUND 180 MG OUT OF 300 MG TOTAL DOSE
     Route: 065

REACTIONS (8)
  - Pain [Unknown]
  - Myalgia [Unknown]
  - Tendon pain [Unknown]
  - Arthralgia [Unknown]
  - Oedema [Unknown]
  - Pruritus [Unknown]
  - Muscular weakness [Unknown]
  - Fatigue [Unknown]
